FAERS Safety Report 12010124 (Version 4)
Quarter: 2016Q4

REPORT INFORMATION
  Report Type: Spontaneous
  Country: JP (occurrence: JP)
  Receive Date: 20160205
  Receipt Date: 20161027
  Transmission Date: 20170206
  Serious: Yes (Death, Hospitalization, Other)
  Sender: FDA-Public Use
  Company Number: JP-BEH-2016058474

PATIENT
  Age: 36 Year
  Sex: Male
  Weight: 38.1 kg

DRUGS (16)
  1. ASPARA POTASSIUM [Concomitant]
     Active Substance: POTASSIUM ASPARTATE
     Dosage: CONTINUED
     Route: 048
  2. GASCON [Concomitant]
     Active Substance: DIMETHICONE
     Dosage: UNK
     Route: 048
     Dates: end: 20141122
  3. FLUNITRAZEPAM [Concomitant]
     Active Substance: FLUNITRAZEPAM
     Dosage: CONTINUED
     Route: 048
  4. ACINON [Concomitant]
     Active Substance: NIZATIDINE
     Indication: PROPHYLAXIS
     Dosage: UNK
     Route: 048
     Dates: start: 20140723, end: 20141122
  5. SANGLOPOR [Suspect]
     Active Substance: HUMAN IMMUNOGLOBULIN G
     Indication: PRIMARY IMMUNODEFICIENCY SYNDROME
     Dosage: 150 ML, UNK
     Route: 042
     Dates: start: 20141105, end: 20150318
  6. SPIRONOLACTONE. [Concomitant]
     Active Substance: SPIRONOLACTONE
     Indication: PROPHYLAXIS
     Dosage: UNK
     Route: 048
     Dates: start: 20140806
  7. HIZENTRA [Suspect]
     Active Substance: HUMAN IMMUNOGLOBULIN G
     Indication: PRIMARY IMMUNODEFICIENCY SYNDROME
     Dosage: START DOSE 10ML (30MIN), 15ML (45 MIN) ON 23-JUL-2014.
     Route: 065
     Dates: start: 20140716, end: 20150107
  8. PROMAC                             /00024401/ [Concomitant]
     Active Substance: NITROFURANTOIN
     Indication: PROPHYLAXIS
     Route: 048
     Dates: end: 20141122
  9. TRAMCET [Concomitant]
     Active Substance: ACETAMINOPHEN\TRAMADOL
     Dosage: CONTINUED
     Route: 048
  10. ALDACTONE-A [Concomitant]
     Active Substance: SPIRONOLACTONE
     Dosage: UNK
     Route: 048
     Dates: start: 20140723, end: 20141122
  11. TENELIA [Concomitant]
     Active Substance: TENELIGLIPTIN
     Indication: PROPHYLAXIS
     Dosage: UNK
     Route: 048
     Dates: start: 20141105
  12. PENTASA [Concomitant]
     Active Substance: MESALAMINE
     Route: 048
     Dates: end: 20141122
  13. ALBUMIN [Suspect]
     Active Substance: ALBUMIN HUMAN
     Indication: PRODUCT USED FOR UNKNOWN INDICATION
     Dosage: CONTINUED
     Route: 051
  14. EDIROL [Concomitant]
     Active Substance: ELDECALCITOL
     Dosage: UNK
     Route: 048
     Dates: end: 20141122
  15. ACTONEL [Concomitant]
     Active Substance: RISEDRONATE SODIUM
     Dosage: CONTINUED
     Route: 048
  16. LOPEMIN                            /00384302/ [Concomitant]
     Active Substance: LOPERAMIDE HYDROCHLORIDE
     Route: 048
     Dates: end: 20141122

REACTIONS (6)
  - Cytomegalovirus infection [Recovering/Resolving]
  - Sepsis [Fatal]
  - Sinusitis [Fatal]
  - Bronchiectasis [Fatal]
  - Pneumonia [Recovering/Resolving]
  - Bronchitis [Fatal]

NARRATIVE: CASE EVENT DATE: 20140722
